FAERS Safety Report 9102765 (Version 1)
Quarter: 2013Q1

REPORT INFORMATION
  Report Type: Spontaneous
  Country: US (occurrence: US)
  Receive Date: 20130220
  Receipt Date: 20130220
  Transmission Date: 20140127
  Serious: No
  Sender: FDA-Public Use
  Company Number: US-009507513-1302USA002454

PATIENT
  Sex: Male

DRUGS (3)
  1. PEG-INTRON [Suspect]
     Indication: HEPATITIS C
     Dosage: UNK
     Dates: start: 20130202
  2. RIBAVIRIN [Suspect]
     Dosage: UNK
     Dates: start: 20130202
  3. TELAPREVIR [Suspect]
     Indication: HEPATITIS C
     Dosage: UNK
     Dates: start: 20130202

REACTIONS (12)
  - Malaise [Unknown]
  - Pyrexia [Unknown]
  - Chills [Unknown]
  - Confusional state [Unknown]
  - Headache [Unknown]
  - Insomnia [Unknown]
  - Gastrointestinal disorder [Unknown]
  - Dizziness [Unknown]
  - Rash [Unknown]
  - Headache [Unknown]
  - Malaise [Unknown]
  - Pyrexia [Unknown]
